FAERS Safety Report 25610910 (Version 1)
Quarter: 2025Q3

REPORT INFORMATION
  Report Type: Spontaneous
  Country: US (occurrence: None)
  Receive Date: 20250725
  Receipt Date: 20250725
  Transmission Date: 20251021
  Serious: Yes (Hospitalization)
  Sender: FDA-CTU
  Company Number: None

PATIENT
  Sex: Female

DRUGS (11)
  1. CREON [Suspect]
     Active Substance: PANCRELIPASE AMYLASE\PANCRELIPASE LIPASE\PANCRELIPASE PROTEASE
     Indication: Cystic fibrosis
     Route: 048
     Dates: start: 20231117
  2. IALBUTEROL AER HFA [Concomitant]
  3. BETHANECHOL [Concomitant]
     Active Substance: BETHANECHOL
  4. BISACODYL [Concomitant]
     Active Substance: BISACODYL
  5. CYPROHEPTADINE HYDROCHLORIDE [Concomitant]
     Active Substance: CYPROHEPTADINE HYDROCHLORIDE
  6. LANSOPRAZOLE [Concomitant]
     Active Substance: LANSOPRAZOLE
  7. MULTIPLE VIT [Concomitant]
  8. PENTASA [Concomitant]
     Active Substance: MESALAMINE
  9. PHYTONADIONE [Concomitant]
     Active Substance: PHYTONADIONE
  10. PULMOZVME [Concomitant]
  11. SODIUM CHLOR NEB 7% [Concomitant]

REACTIONS (1)
  - Surgery [None]
